FAERS Safety Report 12785145 (Version 1)
Quarter: 2016Q3

REPORT INFORMATION
  Report Type: Spontaneous
  Country: US (occurrence: US)
  Receive Date: 20160927
  Receipt Date: 20160927
  Transmission Date: 20161109
  Serious: Yes (Other)
  Sender: FDA-Public Use
  Company Number: US-SA-2016SA173913

PATIENT
  Age: 72 Year
  Sex: Male

DRUGS (5)
  1. SOLOSTAR [Concomitant]
     Active Substance: DEVICE
  2. HUMALOG [Concomitant]
     Active Substance: INSULIN LISPRO
  3. TOUJEO [Suspect]
     Active Substance: INSULIN GLARGINE
     Indication: DIABETES MELLITUS
     Dosage: DOSE:74 UNIT(S)
     Route: 065
  4. SOLOSTAR [Concomitant]
     Active Substance: DEVICE
  5. TOUJEO [Suspect]
     Active Substance: INSULIN GLARGINE
     Indication: DIABETES MELLITUS
     Dosage: DOSE:74 UNIT(S)
     Route: 065

REACTIONS (2)
  - Drug dose omission [Unknown]
  - Accident [Unknown]
